FAERS Safety Report 16828176 (Version 1)
Quarter: 2019Q3

REPORT INFORMATION
  Report Type: Spontaneous
  Country: US (occurrence: US)
  Receive Date: 20190919
  Receipt Date: 20190919
  Transmission Date: 20191005
  Serious: No
  Sender: FDA-Public Use
  Company Number: US-BEH-2019106573

PATIENT
  Age: 8 Year
  Sex: Female

DRUGS (1)
  1. HIZENTRA [Suspect]
     Active Substance: HUMAN IMMUNOGLOBULIN G
     Indication: IMMUNODEFICIENCY COMMON VARIABLE
     Dosage: 6 GRAM, QW
     Route: 058
     Dates: start: 20190828

REACTIONS (4)
  - Infusion site swelling [Recovering/Resolving]
  - Infusion site extravasation [Unknown]
  - Infusion site pain [Unknown]
  - Infusion site rash [Unknown]

NARRATIVE: CASE EVENT DATE: 20190828
